FAERS Safety Report 17723896 (Version 1)
Quarter: 2020Q2

REPORT INFORMATION
  Report Type: Spontaneous
  Country: CA (occurrence: CA)
  Receive Date: 20200429
  Receipt Date: 20200429
  Transmission Date: 20200714
  Serious: Yes (Hospitalization)
  Sender: FDA-Public Use
  Company Number: CA-CELGENEUS-CAN-20181101082

PATIENT
  Age: 15 Year
  Sex: Male

DRUGS (58)
  1. CYTARABINE. [Suspect]
     Active Substance: CYTARABINE
     Route: 065
     Dates: start: 20170208, end: 20171015
  2. SERTRALINE [Concomitant]
     Active Substance: SERTRALINE HYDROCHLORIDE
     Dosage: 75 MILLIGRAM
     Route: 048
     Dates: start: 20180115
  3. CETIRIZINE [Concomitant]
     Active Substance: CETIRIZINE HYDROCHLORIDE
     Indication: PRURITUS
  4. LORAZEPAM. [Concomitant]
     Active Substance: LORAZEPAM
     Indication: AGITATION
     Dosage: 4 MILLIGRAM
     Route: 060
     Dates: start: 20180312, end: 20180315
  5. NABILONE [Concomitant]
     Active Substance: NABILONE
     Indication: PAIN
     Dosage: 2 MILLIGRAM
     Route: 048
     Dates: start: 20180323, end: 20180420
  6. ALLOPURINOL. [Concomitant]
     Active Substance: ALLOPURINOL
     Indication: PROPHYLAXIS
     Dosage: 500 MILLIGRAM
     Route: 048
     Dates: start: 20171127, end: 20171202
  7. ALLOPURINOL. [Concomitant]
     Active Substance: ALLOPURINOL
     Dosage: 600 MILLIGRAM
     Route: 048
     Dates: start: 20180302, end: 20180427
  8. AZACITIDINE INJECTABLE [Suspect]
     Active Substance: AZACITIDINE
     Indication: REFRACTORY CANCER
     Dosage: 75 MILLIGRAM/SQ. METER
     Route: 041
     Dates: start: 20180104, end: 20180108
  9. VENETOCLAX. [Suspect]
     Active Substance: VENETOCLAX
     Indication: REFRACTORY CANCER
     Dosage: 200 MILLIGRAM
     Route: 050
     Dates: start: 20171129, end: 20171129
  10. VENETOCLAX. [Suspect]
     Active Substance: VENETOCLAX
     Dosage: 400 MILLIGRAM
     Route: 050
     Dates: start: 20171130, end: 20171130
  11. VENETOCLAX. [Suspect]
     Active Substance: VENETOCLAX
     Dosage: 400 MILLIGRAM
     Route: 048
     Dates: start: 20180413, end: 20180424
  12. PARACETAMOL [Concomitant]
     Active Substance: ACETAMINOPHEN
     Indication: PAIN
  13. CASPOFUNGIN ACETATE. [Concomitant]
     Active Substance: CASPOFUNGIN ACETATE
     Indication: ANTIFUNGAL PROPHYLAXIS
     Dosage: 70 MILLIGRAM
     Route: 041
     Dates: start: 20180112, end: 20180215
  14. PIPERACILLIN AND TAZOBACTAM [Concomitant]
     Active Substance: PIPERACILLIN SODIUM\TAZOBACTAM SODIUM
     Dosage: 960 MILLIGRAM/KILOGRAM
     Route: 041
     Dates: start: 20180323, end: 20180417
  15. PIPERACILLIN AND TAZOBACTAM [Concomitant]
     Active Substance: PIPERACILLIN SODIUM\TAZOBACTAM SODIUM
     Route: 065
     Dates: start: 201804
  16. PREGABALIN. [Concomitant]
     Active Substance: PREGABALIN
     Dosage: 100 MILLIGRAM
     Route: 048
     Dates: start: 20180327
  17. ALLOPURINOL. [Concomitant]
     Active Substance: ALLOPURINOL
     Indication: BLOOD URIC ACID INCREASED
     Dosage: 500 MILLIGRAM
     Route: 048
     Dates: start: 20180104, end: 20180108
  18. ZINC GLUCONATE [Concomitant]
     Active Substance: ZINC GLUCONATE
     Indication: PROMOTION OF WOUND HEALING
     Dosage: 10 MILLIGRAM
     Route: 048
     Dates: start: 20180413
  19. VENETOCLAX. [Suspect]
     Active Substance: VENETOCLAX
     Dosage: 600 MILLIGRAM
     Route: 048
     Dates: start: 20180425, end: 20180504
  20. VITAMIN D [Concomitant]
     Active Substance: VITAMIN D NOS
     Indication: SUPPLEMENTATION THERAPY
     Dosage: 7000 IU (INTERNATIONAL UNIT)
     Route: 048
     Dates: start: 20140115
  21. NABILONE [Concomitant]
     Active Substance: NABILONE
     Dosage: 1 MILLIGRAM
     Route: 048
     Dates: start: 20180421
  22. DEXTROSE AND SODIUM CHLORIDE [Concomitant]
     Active Substance: DEXTROSE MONOHYDRATE\SODIUM CHLORIDE
     Indication: PROPHYLAXIS
     Dosage: 210 MILLILITER
     Route: 041
     Dates: start: 20171128, end: 20171206
  23. VENETOCLAX. [Suspect]
     Active Substance: VENETOCLAX
     Dosage: 600 MILLIGRAM
     Route: 048
     Dates: start: 20180511
  24. GRANISETRON [Concomitant]
     Active Substance: GRANISETRON
     Indication: PROPHYLAXIS OF NAUSEA AND VOMITING
     Dosage: 2 MILLIGRAM
     Route: 048
     Dates: start: 20170214
  25. VANCOMYCIN [Concomitant]
     Active Substance: VANCOMYCIN
     Indication: SEPSIS
     Route: 065
     Dates: start: 201804
  26. RANITIDINE. [Concomitant]
     Active Substance: RANITIDINE
     Indication: GASTROOESOPHAGEAL REFLUX DISEASE
     Dosage: 150 MILLIGRAM
     Route: 041
     Dates: start: 20180107
  27. SERTRALINE [Concomitant]
     Active Substance: SERTRALINE HYDROCHLORIDE
     Indication: DEPRESSION
     Dosage: 50 MILLIGRAM
     Route: 048
     Dates: start: 20140115, end: 20180114
  28. LORAZEPAM. [Concomitant]
     Active Substance: LORAZEPAM
     Indication: ANXIETY
     Dosage: 1.5 MILLIGRAM
     Route: 060
     Dates: start: 20180324
  29. PIPERACILLIN AND TAZOBACTAM [Concomitant]
     Active Substance: PIPERACILLIN SODIUM\TAZOBACTAM SODIUM
     Indication: SEPSIS
     Dosage: 13800 MILLIGRAM
     Route: 041
     Dates: start: 20180111, end: 20180118
  30. PIPERACILLIN AND TAZOBACTAM [Concomitant]
     Active Substance: PIPERACILLIN SODIUM\TAZOBACTAM SODIUM
     Indication: FEBRILE NEUTROPENIA
     Dosage: 10000 MILLIGRAM
     Route: 041
     Dates: start: 20180312, end: 20180315
  31. PREGABALIN. [Concomitant]
     Active Substance: PREGABALIN
     Indication: MYALGIA
     Dosage: 50 MILLIGRAM
     Route: 048
     Dates: start: 20180326, end: 20180326
  32. DEXTROSE AND SODIUM CHLORIDE [Concomitant]
     Active Substance: DEXTROSE MONOHYDRATE\SODIUM CHLORIDE
     Dosage: 200 MILLILITER
     Route: 041
     Dates: start: 20180104, end: 20180111
  33. VENETOCLAX. [Suspect]
     Active Substance: VENETOCLAX
     Dosage: 500 MILLIGRAM
     Route: 048
     Dates: start: 20180505, end: 20180510
  34. CYTARABINE. [Suspect]
     Active Substance: CYTARABINE
     Indication: REFRACTORY CANCER
     Route: 065
     Dates: start: 20120404, end: 20120515
  35. VANCOMYCIN [Concomitant]
     Active Substance: VANCOMYCIN
     Indication: FEBRILE NEUTROPENIA
     Dosage: 3000 MILLIGRAM
     Route: 041
     Dates: start: 20180107
  36. RANITIDINE. [Concomitant]
     Active Substance: RANITIDINE
     Indication: GASTRIC PH DECREASED
     Dosage: 300 MILLIGRAM
     Route: 041
     Dates: start: 20180315
  37. CASPOFUNGIN ACETATE. [Concomitant]
     Active Substance: CASPOFUNGIN ACETATE
     Dosage: 50 MILLIGRAM
     Route: 041
     Dates: start: 20180216
  38. CETIRIZINE [Concomitant]
     Active Substance: CETIRIZINE HYDROCHLORIDE
     Indication: HYPERSENSITIVITY
     Dosage: 20 MILLIGRAM
     Route: 048
     Dates: start: 20170215, end: 20180908
  39. CETIRIZINE [Concomitant]
     Active Substance: CETIRIZINE HYDROCHLORIDE
     Indication: PREMEDICATION
     Dosage: 5 MILLIGRAM
     Route: 048
     Dates: start: 20180326, end: 20180406
  40. MACROGOL 3350 [Concomitant]
     Active Substance: POLYETHYLENE GLYCOL 3350
     Indication: CONSTIPATION
     Dosage: 17 GRAM
     Route: 048
     Dates: start: 20110815
  41. DIPHENHYDRAMINE HYDROCHLORIDE. [Concomitant]
     Active Substance: DIPHENHYDRAMINE HYDROCHLORIDE
     Indication: PREMEDICATION
     Dosage: 50 MILLIGRAM
     Route: 041
     Dates: start: 20171201, end: 20180526
  42. CLOXACILLIN [Concomitant]
     Active Substance: CLOXACILLIN
     Indication: INFECTION
     Dosage: 2000 MILLIGRAM
     Route: 048
     Dates: start: 20180417, end: 20180428
  43. AZACITIDINE INJECTABLE [Suspect]
     Active Substance: AZACITIDINE
     Dosage: 75 MILLIGRAM/SQ. METER
     Route: 041
     Dates: start: 20180223, end: 20180226
  44. VENETOCLAX. [Suspect]
     Active Substance: VENETOCLAX
     Dosage: 400 MILLIGRAM
     Route: 050
     Dates: start: 20180104, end: 20180412
  45. CYTARABINE. [Suspect]
     Active Substance: CYTARABINE
     Indication: ACUTE MYELOID LEUKAEMIA
     Route: 065
     Dates: start: 20110812, end: 20121212
  46. PENTAMIDINE [Concomitant]
     Active Substance: PENTAMIDINE
     Indication: INFECTION PROPHYLAXIS
     Dosage: 300 MILLIGRAM
     Route: 041
     Dates: start: 20171115
  47. PARACETAMOL [Concomitant]
     Active Substance: ACETAMINOPHEN
     Indication: INFLUENZA
     Dosage: 3900 MILLIGRAM
     Route: 048
     Dates: start: 20171129
  48. PARACETAMOL [Concomitant]
     Active Substance: ACETAMINOPHEN
     Indication: HEADACHE
  49. PARACETAMOL [Concomitant]
     Active Substance: ACETAMINOPHEN
     Indication: PREMEDICATION
  50. DOCUSATE SODIUM. [Concomitant]
     Active Substance: DOCUSATE SODIUM
     Indication: CONSTIPATION PROPHYLAXIS
     Dosage: 200 MILLIGRAM
     Route: 048
     Dates: start: 20180312, end: 20180908
  51. LORAZEPAM. [Concomitant]
     Active Substance: LORAZEPAM
     Indication: ANXIETY
  52. CLOXACILLIN [Concomitant]
     Active Substance: CLOXACILLIN
     Indication: SEPSIS
     Dosage: 12000 MILLIGRAM
     Route: 048
     Dates: start: 20180324, end: 20180417
  53. VENETOCLAX. [Suspect]
     Active Substance: VENETOCLAX
     Dosage: 800 MILLIGRAM
     Route: 050
     Dates: start: 20171201, end: 20180103
  54. CYTARABINE. [Suspect]
     Active Substance: CYTARABINE
     Dosage: 20 MILLIGRAM/SQ. METER
     Route: 041
     Dates: start: 20180430, end: 20180509
  55. MELATONIN [Concomitant]
     Active Substance: MELATONIN
     Indication: INSOMNIA
     Dosage: 6 MILLIGRAM
     Route: 048
     Dates: start: 20170615
  56. GRANISETRON [Concomitant]
     Active Substance: GRANISETRON
     Indication: PROPHYLAXIS OF NAUSEA AND VOMITING
  57. NYSTATIN. [Concomitant]
     Active Substance: NYSTATIN
     Indication: STOMATITIS
     Dosage: 2800000 IU (INTERNATIONAL UNIT)
     Route: 048
     Dates: start: 20170715
  58. NYSTATIN. [Concomitant]
     Active Substance: NYSTATIN
     Dosage: 120000 IU (INTERNATIONAL UNIT)
     Route: 048
     Dates: start: 20170715

REACTIONS (2)
  - Bacterial infection [Recovered/Resolved]
  - Stoma site infection [Recovered/Resolved]

NARRATIVE: CASE EVENT DATE: 20180428
